FAERS Safety Report 8919836 (Version 3)
Quarter: 2013Q1

REPORT INFORMATION
  Report Type: Spontaneous
  Country: US (occurrence: US)
  Receive Date: 20121121
  Receipt Date: 20130111
  Transmission Date: 20140127
  Serious: Yes (Hospitalization)
  Sender: FDA-Public Use
  Company Number: US-BAYER-2012-120016

PATIENT
  Age: 31 Year
  Sex: Female
  Weight: 106.12 kg

DRUGS (5)
  1. YAZ [Suspect]
     Dosage: UNK
     Dates: start: 20030401, end: 200310
  2. YASMIN [Suspect]
  3. BACTRIM DS [Concomitant]
     Dosage: 800 - 160 MG TB (TABLET) - 1, BID
     Route: 048
  4. DIFLUCAN [Concomitant]
     Dosage: 150 MG, UNK
     Route: 048
  5. NYSTATIN W/TRIAMCINOLONE [NYSTATIN,TRIAMCINOLONE] [Concomitant]

REACTIONS (8)
  - Pulmonary embolism [None]
  - Pain [None]
  - Injury [None]
  - General physical health deterioration [None]
  - Anxiety [None]
  - Anhedonia [None]
  - Emotional distress [None]
  - Pain [None]
